FAERS Safety Report 9003102 (Version 2)
Quarter: 2013Q2

REPORT INFORMATION
  Report Type: Spontaneous
  Country: US (occurrence: None)
  Receive Date: 20120508
  Receipt Date: 20120709
  Transmission Date: 20140414
  Serious: No
  Sender: FDA-Public Use
  Company Number: 2012HGS-003142

PATIENT
  Age: 54 Year
  Sex: Female
  Weight: 106.6 kg

DRUGS (14)
  1. BENLYSTA [Suspect]
     Indication: SYSTEMIC LUPUS ERYTHEMATOSUS
     Dosage: 10 MG/KG, INTRAVENOUS DRIP
     Route: 041
     Dates: start: 20110923, end: 20120923
  2. PREDNISONE [Concomitant]
  3. CYCLOBENZAPRINE [Concomitant]
  4. ALLEGRA-D [Concomitant]
  5. PROTONIX [Concomitant]
  6. VITAMIN B COMPLEX [Concomitant]
  7. VITAMIN C [Concomitant]
  8. MULTIVITAMIN FOR WOMAN OVER 50 [Concomitant]
  9. LYRICA [Concomitant]
  10. LUNESTA [Concomitant]
  11. FOLIC ACID [Concomitant]
  12. DILAUDID [Concomitant]
  13. EVOXAC [Concomitant]
  14. CELLCEPT [Concomitant]

REACTIONS (3)
  - Depression [None]
  - Crying [None]
  - Mood altered [None]
